FAERS Safety Report 9522680 (Version 1)
Quarter: 2013Q1

REPORT INFORMATION
  Report Type: Spontaneous
  Country: US (occurrence: None)
  Receive Date: 20130305
  Receipt Date: 20130305
  Transmission Date: 20140127
  Serious: Yes (Other)
  Sender: FDA-Public Use
  Company Number: 163-21880-12032296

PATIENT
  Age: 54 Year
  Sex: Male

DRUGS (8)
  1. REVLIMID (LENALIDOMIDE) (25 MILLIGRAM, CAPSULES) [Suspect]
     Indication: PLASMA CELL MYELOMA
     Dosage: 25 MG,  QD X 21 DAYS,  PO
     Route: 048
     Dates: start: 201202
  2. ASPIRIN (ACETYLSALICYLIC ACID) [Concomitant]
  3. CODEINE / GUAI (CHERACOL /USA/) [Concomitant]
  4. DEXAMETHASONE (DEXAMETHASONE) [Concomitant]
  5. FEXOFENADINE [Concomitant]
  6. LEVOTHYROXINE (LEVOTHYROXINE0 [Concomitant]
  7. OMEPRAZOLE (OMEPRAZOLE) [Concomitant]
  8. VALACYCLOVIR (VALACICLOVIR HYDROCHLORIDE) [Concomitant]

REACTIONS (2)
  - Hepatic enzyme increased [None]
  - Nasopharyngitis [None]
